FAERS Safety Report 7203430-8 (Version None)
Quarter: 2010Q4

REPORT INFORMATION
  Report Type: 
  Country: None (occurrence: None)
  Receive Date: 20101228
  Receipt Date: 20101228
  Transmission Date: 20110411
  Serious: Yes (Other)
  Sender: FDA-Public Use
  Company Number: None

PATIENT
  Age: 43 Year
  Sex: Female
  Weight: 131.5431 kg

DRUGS (1)
  1. LANTUS [Suspect]
     Indication: TYPE 2 DIABETES MELLITUS
     Dosage: 10 UNITS DAILY SQ
     Route: 058
     Dates: start: 20101207, end: 20101219

REACTIONS (3)
  - ERYTHEMA [None]
  - SKIN WRINKLING [None]
  - SWELLING FACE [None]
